FAERS Safety Report 4852882-7 (Version None)
Quarter: 2005Q4

REPORT INFORMATION
  Report Type: 
  Country: None (occurrence: None)
  Receive Date: 20051214
  Receipt Date: 20050513
  Transmission Date: 20060501
  Serious: Yes (Other)
  Sender: FDA-Public Use
  Company Number: FR-AVENTIS-200511717FR

PATIENT
  Age: 55 Year
  Sex: Male
  Weight: 80 kg

DRUGS (2)
  1. BIRODOGYL [Suspect]
     Indication: TOOTH ABSCESS
     Route: 048
     Dates: start: 20041104, end: 20041108
  2. BIRODOGYL [Suspect]
     Indication: GINGIVITIS
     Route: 048
     Dates: start: 20041104, end: 20041108

REACTIONS (9)
  - ABDOMINAL PAIN UPPER [None]
  - DERMATITIS EXFOLIATIVE [None]
  - DYSPNOEA [None]
  - DYSURIA [None]
  - FACE OEDEMA [None]
  - HYPERSENSITIVITY [None]
  - HYPOTENSION [None]
  - PRURITUS [None]
  - TACHYCARDIA [None]
